FAERS Safety Report 9223127 (Version 2)
Quarter: 2013Q2

REPORT INFORMATION
  Report Type: Report from Study
  Country: DE (occurrence: DE)
  Receive Date: 20130410
  Receipt Date: 20130628
  Transmission Date: 20140414
  Serious: Yes (Other)
  Sender: FDA-Public Use
  Company Number: PHHY2013DE033680

PATIENT
  Sex: Female

DRUGS (5)
  1. GILENYA [Suspect]
     Indication: MULTIPLE SCLEROSIS
     Dosage: 0.5 MG, QD
     Route: 048
     Dates: start: 20120202, end: 20130408
  2. CITALOPRAM [Concomitant]
     Dosage: 20 MG, UNK
  3. BACLOFEN [Concomitant]
     Dosage: 10 MG, UNK
  4. GABAPENTIN [Concomitant]
     Dosage: 300 MG, UNK
  5. LEVOTHYROXINE [Concomitant]
     Dosage: 50 UG, UNK

REACTIONS (4)
  - Central nervous system inflammation [Recovered/Resolved]
  - Herpes virus infection [Recovered/Resolved]
  - Influenza [Recovered/Resolved]
  - Pyrexia [Recovered/Resolved]
